FAERS Safety Report 5007855-0 (Version None)
Quarter: 2006Q2

REPORT INFORMATION
  Report Type: 
  Country: None (occurrence: None)
  Receive Date: 20060522
  Receipt Date: 20060515
  Transmission Date: 20061013
  Serious: Yes (Death, Hospitalization, Other)
  Sender: FDA-Public Use
  Company Number: GB-BRISTOL-MYERS SQUIBB COMPANY-13376900

PATIENT
  Age: 43 Year
  Sex: Female

DRUGS (5)
  1. SUSTIVA [Suspect]
     Indication: HIV INFECTION
     Dosage: RESTARTED 26-JUL-2005
     Dates: start: 20050501, end: 20050821
  2. TENOFOVIR [Concomitant]
  3. LAMIVUDINE [Concomitant]
  4. PHENYTOIN [Concomitant]
  5. RIFAMPICIN [Concomitant]

REACTIONS (5)
  - DEATH [None]
  - IMMUNE RECONSTITUTION SYNDROME [None]
  - LIVER FUNCTION TEST ABNORMAL [None]
  - TOXIC EPIDERMAL NECROLYSIS [None]
  - TUBERCULOSIS [None]
